FAERS Safety Report 6577989 (Version 2)
Quarter: 2020Q3

REPORT INFORMATION
  Report Type: Report from Study
  Country: CZ (occurrence: CZ)
  Receive Date: 20080311
  Receipt Date: 20080319
  Transmission Date: 20201105
  Serious: Yes (Other)
  Sender: FDA-Public Use
  Company Number: CZ-ROCHE-550468

PATIENT
  Sex: Female

DRUGS (1)
  1. IBANDRONIC ACID. [Suspect]
     Active Substance: IBANDRONIC ACID
     Indication: OSTEOPOROSIS
     Route: 048
     Dates: start: 20070302, end: 20070330

REACTIONS (3)
  - Dyspnoea [Unknown]
  - Deep vein thrombosis [Unknown]
  - Erythema [Unknown]

NARRATIVE: CASE EVENT DATE: 20070301
